FAERS Safety Report 21609619 (Version 5)
Quarter: 2024Q3

REPORT INFORMATION
  Report Type: Report from Study
  Country: BR (occurrence: BR)
  Receive Date: 20221117
  Receipt Date: 20240808
  Transmission Date: 20241017
  Serious: Yes (Hospitalization, Disabling, Other)
  Sender: TAKEDA
  Company Number: BR-TAKEDA-2022TUS002842

PATIENT
  Age: 2 Year
  Sex: Male
  Weight: 18 kg

DRUGS (8)
  1. IDURSULFASE [Suspect]
     Active Substance: IDURSULFASE
     Indication: Mucopolysaccharidosis II
     Dosage: 2 DOSAGE FORM, 1/WEEK
     Route: 042
  2. IDURSULFASE [Suspect]
     Active Substance: IDURSULFASE
     Dosage: UNK UNK, 1/WEEK
     Route: 042
  3. IDURSULFASE [Suspect]
     Active Substance: IDURSULFASE
     Dosage: UNK
     Route: 042
  4. IDURSULFASE [Suspect]
     Active Substance: IDURSULFASE
     Dosage: UNK UNK, 1/WEEK
     Route: 042
  5. ALBUTEROL [Concomitant]
     Active Substance: ALBUTEROL
     Dosage: UNK
     Route: 065
  6. BECLOMETHASONE DIPROPIONATE [Concomitant]
     Active Substance: BECLOMETHASONE DIPROPIONATE
     Dosage: 50 MILLIGRAM
     Route: 065
  7. HYDROXYZINE HYDROCHLORIDE [Concomitant]
     Active Substance: HYDROXYZINE HYDROCHLORIDE
     Dosage: UNK
  8. DIPYRONE [Concomitant]
     Active Substance: DIPYRONE
     Dosage: UNK

REACTIONS (19)
  - Adenovirus infection [Recovered/Resolved]
  - Pneumonia [Recovered/Resolved]
  - Hypokinesia [Unknown]
  - Asthma [Unknown]
  - Muscle atrophy [Unknown]
  - Joint stiffness [Unknown]
  - Spinal deformity [Unknown]
  - Incorrect dose administered [Unknown]
  - Hypersensitivity [Unknown]
  - Hypoacusis [Unknown]
  - Limb discomfort [Unknown]
  - Visual impairment [Unknown]
  - Illness [Unknown]
  - Fatigue [Unknown]
  - Product availability issue [Unknown]
  - Off label use [Unknown]
  - Product use issue [Unknown]
  - Inappropriate schedule of product administration [Recovered/Resolved]
  - Product dose omission issue [Unknown]

NARRATIVE: CASE EVENT DATE: 20210801
